FAERS Safety Report 5722108-0 (Version None)
Quarter: 2008Q2

REPORT INFORMATION
  Report Type: 
  Country: None (occurrence: None)
  Receive Date: 20080429
  Receipt Date: 20080422
  Transmission Date: 20081010
  Serious: Yes (Death, Hospitalization, Other)
  Sender: FDA-Public Use
  Company Number: US-ELI_LILLY_AND_COMPANY-US200804005562

PATIENT
  Sex: Male

DRUGS (2)
  1. HUMALOG [Suspect]
     Dates: start: 20060101
  2. HUMULIN N [Suspect]
     Dosage: UNK, UNK
     Dates: start: 20060101

REACTIONS (4)
  - CARDIAC ARREST [None]
  - HEART RATE DECREASED [None]
  - LOSS OF CONSCIOUSNESS [None]
  - METASTASES TO LUNG [None]
